FAERS Safety Report 7608303-4 (Version None)
Quarter: 2011Q3

REPORT INFORMATION
  Report Type: 
  Country: None (occurrence: None)
  Receive Date: 20110706
  Receipt Date: 20110623
  Transmission Date: 20111222
  Serious: Yes (Death)
  Sender: FDA-Public Use
  Company Number: AUR-APL-2011-03745

PATIENT
  Age: 59 Year
  Sex: Male

DRUGS (6)
  1. IPERTEN (MANIDIPINE HYDROCHLORIDE) [Suspect]
     Indication: PRODUCT USED FOR UNKNOWN INDICATION
     Dosage: (10 MG,1 D), ORAL
     Route: 048
     Dates: start: 20070723
  2. MEDIATOR (BENFLUOR EX HYDROCHLORIDE) [Concomitant]
  3. METFORMIN HCL [Suspect]
     Dosage: 2550 MG (850 MG,3 IN 1 D)
     Dates: start: 20070723
  4. ATORVASTATIN CALCIUM [Suspect]
     Indication: PRODUCT USED FOR UNKNOWN INDICATION
     Dosage: (10 MG,1 D), ORAL
     Route: 048
     Dates: start: 20070723
  5. PLAVIX [Suspect]
     Indication: PRODUCT USED FOR UNKNOWN INDICATION
     Dosage: (75 MG,1 D), ORAL
     Route: 048
     Dates: start: 20070723
  6. RAMIPRIL [Suspect]
     Indication: PRODUCT USED FOR UNKNOWN INDICATION
     Dosage: (5 MG,1 D), ORAL
     Route: 048
     Dates: start: 20070723

REACTIONS (3)
  - CONGESTIVE CARDIOMYOPATHY [None]
  - CARDIAC FAILURE [None]
  - ARTERIOSCLEROSIS CORONARY ARTERY [None]
